FAERS Safety Report 5883315-X (Version None)
Quarter: 2008Q3

REPORT INFORMATION
  Report Type: 
  Country: None (occurrence: None)
  Receive Date: 20080911
  Receipt Date: 20080911
  Transmission Date: 20090109
  Serious: Yes (Other)
  Sender: FDA-Public Use
  Company Number: None

PATIENT
  Age: 44 Year
  Sex: Female
  Weight: 83.9154 kg

DRUGS (2)
  1. EFFEXOR [Suspect]
     Indication: ANXIETY
     Dosage: 450 MG DAILY PO
     Route: 048
     Dates: start: 20050301, end: 20080901
  2. EFFEXOR [Suspect]
     Indication: DEPRESSION
     Dosage: 450 MG DAILY PO
     Route: 048
     Dates: start: 20050301, end: 20080901

REACTIONS (5)
  - AMNESIA [None]
  - APHASIA [None]
  - CONFUSIONAL STATE [None]
  - DISTURBANCE IN ATTENTION [None]
  - IMPAIRED WORK ABILITY [None]
